FAERS Safety Report 20387461 (Version 1)
Quarter: 2022Q1

REPORT INFORMATION
  Report Type: Spontaneous
  Country: IN (occurrence: IN)
  Receive Date: 20220127
  Receipt Date: 20220127
  Transmission Date: 20220423
  Serious: Yes (Hospitalization)
  Sender: FDA-Public Use
  Company Number: IN-NAARI PTE LIMITED-2022NP000008

PATIENT
  Age: 23 Year
  Sex: Female

DRUGS (1)
  1. LEVONORGESTREL AND ETHINYL ESTRADIOL [Suspect]
     Active Substance: ETHINYL ESTRADIOL\LEVONORGESTREL
     Indication: Polycystic ovaries
     Dosage: UNK, PILLS/ SINCE LAST 2 MONTHS
     Route: 048

REACTIONS (7)
  - Pulmonary arterial hypertension [Recovered/Resolved]
  - Cerebral artery occlusion [Recovered/Resolved]
  - Pulmonary artery thrombosis [Recovered/Resolved]
  - Pulmonary venous thrombosis [Recovered/Resolved]
  - Atrial thrombosis [Recovered/Resolved]
  - Pulmonary embolism [Recovered/Resolved]
  - Cerebral thrombosis [Recovered/Resolved]
